FAERS Safety Report 15018002 (Version 1)
Quarter: 2018Q2

REPORT INFORMATION
  Report Type: Spontaneous
  Country: DE (occurrence: DE)
  Receive Date: 20180615
  Receipt Date: 20180615
  Transmission Date: 20180711
  Serious: Yes (Hospitalization)
  Sender: FDA-Public Use
  Company Number: DE-TEVA-2018-DE-907400

PATIENT
  Age: 81 Year
  Sex: Male

DRUGS (5)
  1. SIMVASTATIN/EZETIMIB [Concomitant]
     Dosage: 10|80 MG, NK
     Route: 065
  2. PHENPROCOUMON [Concomitant]
     Active Substance: PHENPROCOUMON
     Dosage: BY SCHEME
     Route: 065
  3. ENALAPRIL [Concomitant]
     Active Substance: ENALAPRIL
     Dosage: 10 MILLIGRAM DAILY;
     Route: 065
  4. TORASEMID [Concomitant]
     Active Substance: TORSEMIDE
     Dosage: 1-0-0.5-0
     Route: 065
  5. METOPROLOL. [Suspect]
     Active Substance: METOPROLOL
     Dosage: 100 MILLIGRAM DAILY;
     Route: 065

REACTIONS (4)
  - Dysarthria [Unknown]
  - Contraindicated product administered [Unknown]
  - Drug administration error [Unknown]
  - Fall [Unknown]
